FAERS Safety Report 4573670-5 (Version None)
Quarter: 2005Q1

REPORT INFORMATION
  Report Type: 
  Country: None (occurrence: None)
  Receive Date: 20050208
  Receipt Date: 20040928
  Transmission Date: 20050727
  Serious: No
  Sender: FDA-Public Use
  Company Number: US-GLAXOSMITHKLINE-A0527614A

PATIENT
  Sex: Female

DRUGS (5)
  1. PAXIL [Suspect]
     Indication: DEPRESSION
     Route: 048
  2. NAPROXEN [Concomitant]
  3. MULTIVITAMIN [Concomitant]
  4. ASPIRIN [Concomitant]
  5. CALCIUM GLUCONATE [Concomitant]

REACTIONS (2)
  - ABNORMAL DREAMS [None]
  - POLLAKIURIA [None]
